FAERS Safety Report 18456798 (Version 1)
Quarter: 2020Q4

REPORT INFORMATION
  Report Type: Spontaneous
  Country: US (occurrence: US)
  Receive Date: 20201102
  Receipt Date: 20201102
  Transmission Date: 20210114
  Serious: Yes (Hospitalization)
  Sender: FDA-Public Use
  Company Number: None

PATIENT
  Age: 74 Year
  Sex: Female

DRUGS (19)
  1. CHLORTHALIDONE. [Concomitant]
     Active Substance: CHLORTHALIDONE
     Dates: start: 20190212
  2. METHOTREXATE. [Concomitant]
     Active Substance: METHOTREXATE
     Dates: start: 20190212
  3. ANUSOL-HC [Concomitant]
     Active Substance: HYDROCORTISONE
     Dates: start: 20190212
  4. ORENCIA [Suspect]
     Active Substance: ABATACEPT
     Indication: PRODUCT USED FOR UNKNOWN INDICATION
     Dosage: ?          OTHER FREQUENCY:EVERY WEEK;?
     Route: 058
     Dates: start: 20171221
  5. METFORMIN [Concomitant]
     Active Substance: METFORMIN HYDROCHLORIDE
     Dates: start: 20190212
  6. SPIRONOLACTONE. [Concomitant]
     Active Substance: SPIRONOLACTONE
     Dates: start: 20190212
  7. TRAZODONE [Concomitant]
     Active Substance: TRAZODONE HYDROCHLORIDE
     Dates: start: 20190212
  8. ASPIRIN LOW DOSE [Concomitant]
     Active Substance: ASPIRIN
     Dates: start: 20190212
  9. MELOXICAM. [Concomitant]
     Active Substance: MELOXICAM
     Dates: start: 20190212
  10. PREDNISONE. [Concomitant]
     Active Substance: PREDNISONE
     Dates: start: 20190212
  11. OOMEPRAZOLE [Concomitant]
     Dates: start: 20190212
  12. AMLODIPINE [Concomitant]
     Active Substance: AMLODIPINE BESYLATE
     Dates: start: 20190212
  13. VOLTAREN [Concomitant]
     Active Substance: DICLOFENAC SODIUM
     Dates: start: 20190212
  14. OLMES/AMLOD/HCTZ [Concomitant]
     Dates: start: 20190212
  15. CALTRATE [Concomitant]
     Active Substance: CALCIUM CARBONATE
     Dates: start: 20190212
  16. BASAGLAR [Concomitant]
     Active Substance: INSULIN GLARGINE
     Dates: start: 20190212
  17. SIMVASTATIN. [Concomitant]
     Active Substance: SIMVASTATIN
     Dates: start: 20190212
  18. VALTREX [Concomitant]
     Active Substance: VALACYCLOVIR HYDROCHLORIDE
     Dates: start: 20190212
  19. PROPYLTHIOUR [Concomitant]
     Dates: start: 20200804

REACTIONS (2)
  - Breast operation [None]
  - Therapy interrupted [None]

NARRATIVE: CASE EVENT DATE: 20201030
